FAERS Safety Report 14526500 (Version 3)
Quarter: 2018Q1

REPORT INFORMATION
  Report Type: Spontaneous
  Country: US (occurrence: US)
  Receive Date: 20180213
  Receipt Date: 20180220
  Transmission Date: 20180509
  Serious: No
  Sender: FDA-Public Use
  Company Number: US-BIOGEN-2018BI00521885

PATIENT
  Sex: Female

DRUGS (1)
  1. TYSABRI [Suspect]
     Active Substance: NATALIZUMAB
     Indication: MULTIPLE SCLEROSIS
     Route: 065
     Dates: start: 20100713

REACTIONS (6)
  - Musculoskeletal stiffness [Unknown]
  - Drug dose omission [Unknown]
  - General physical health deterioration [Unknown]
  - Malaise [Unknown]
  - Drug intolerance [Unknown]
  - Gastrointestinal pain [Unknown]
